FAERS Safety Report 5112961-6 (Version None)
Quarter: 2006Q3

REPORT INFORMATION
  Report Type: 
  Country: None (occurrence: None)
  Receive Date: 20060920
  Receipt Date: 20060908
  Transmission Date: 20061208
  Serious: Yes (Hospitalization)
  Sender: FDA-Public Use
  Company Number: CFX20060011

PATIENT
  Age: 62 Year
  Sex: Male
  Weight: 76.2043 kg

DRUGS (2)
  1. CIPROFLOXACIN [Suspect]
     Indication: CHOLECYSTITIS INFECTIVE
     Dosage: 500 MG ONCE PO
     Route: 048
     Dates: start: 20060824, end: 20060824
  2. LIPITOR [Concomitant]

REACTIONS (12)
  - DRUG INEFFECTIVE [None]
  - DYSPNOEA [None]
  - HYPOTENSION [None]
  - INSOMNIA [None]
  - JAW DISORDER [None]
  - MYALGIA [None]
  - NAUSEA [None]
  - ODYNOPHAGIA [None]
  - PRURITUS [None]
  - RASH ERYTHEMATOUS [None]
  - SWELLING FACE [None]
  - URTICARIA [None]
